FAERS Safety Report 7463323-8 (Version None)
Quarter: 2011Q2

REPORT INFORMATION
  Report Type: 
  Country: None (occurrence: None)
  Receive Date: 20110506
  Receipt Date: 20110427
  Transmission Date: 20111010
  Serious: Yes (Other)
  Sender: FDA-Public Use
  Company Number: US-WATSON-2011-03989

PATIENT
  Sex: Male
  Weight: 113 kg

DRUGS (7)
  1. WARFARIN SODIUM [Concomitant]
     Indication: ANTICOAGULANT THERAPY
     Dosage: 5 MG, DAILY
     Route: 048
  2. ZETIA [Concomitant]
     Indication: DIABETES MELLITUS
     Dosage: 10 MG, DAILY
     Route: 048
  3. OMEPRAZOLE [Concomitant]
     Indication: GASTROOESOPHAGEAL REFLUX DISEASE
     Dosage: 20 MG, DAILY
     Route: 048
  4. METOPROLOL SUCCINATE [Concomitant]
     Indication: HYPERTENSION
     Dosage: 50 MG, DAILY
     Route: 048
  5. RAPAFLO [Suspect]
     Indication: BENIGN PROSTATIC HYPERPLASIA
     Dosage: 8 MG, DAILY
     Route: 048
     Dates: start: 20101001, end: 20110101
  6. NIASPAN [Concomitant]
     Indication: BLOOD CHOLESTEROL INCREASED
     Dosage: 500 MG, DAILY
     Route: 048
  7. LEVEMIR [Concomitant]
     Indication: DIABETES MELLITUS
     Dosage: 10 UNITS, QPM
     Route: 058

REACTIONS (6)
  - URINE ANALYSIS ABNORMAL [None]
  - DERMATITIS [None]
  - SYSTEMIC LUPUS ERYTHEMATOSUS RASH [None]
  - DRUG ERUPTION [None]
  - CUTANEOUS LUPUS ERYTHEMATOSUS [None]
  - BILIRUBIN CONJUGATED INCREASED [None]
